FAERS Safety Report 9059128 (Version 1)
Quarter: 2013Q1

REPORT INFORMATION
  Report Type: Spontaneous
  Country: US (occurrence: US)
  Receive Date: 20130211
  Receipt Date: 20130211
  Transmission Date: 20140127
  Serious: No
  Sender: FDA-Public Use
  Company Number: US-BRISTOL-MYERS SQUIBB COMPANY-16978736

PATIENT
  Sex: Female
  Weight: 154 kg

DRUGS (3)
  1. COUMADIN [Suspect]
  2. METFORMIN HCL [Suspect]
     Indication: DIABETES MELLITUS
  3. LOVENOX [Suspect]
     Indication: DEEP VEIN THROMBOSIS
     Dosage: INJ

REACTIONS (4)
  - Blood glucose increased [Unknown]
  - Injection site haematoma [Not Recovered/Not Resolved]
  - Injection site pain [Unknown]
  - Injection site discomfort [Unknown]
